FAERS Safety Report 13678223 (Version 1)
Quarter: 2017Q2

REPORT INFORMATION
  Report Type: Spontaneous
  Country: US (occurrence: US)
  Receive Date: 20170621
  Receipt Date: 20170621
  Transmission Date: 20170830
  Serious: Yes (Life-Threatening, Other)
  Sender: FDA-Public Use
  Company Number: None

PATIENT
  Age: 33 Year
  Sex: Male
  Weight: 76.5 kg

DRUGS (1)
  1. EPINEPHRINE AUTO-INJECTOR [Suspect]
     Active Substance: EPINEPHRINE
     Indication: ANAPHYLACTIC SHOCK
     Route: 030
     Dates: start: 20170620, end: 20170620

REACTIONS (3)
  - Needle issue [None]
  - Drug ineffective [None]
  - Incorrect dose administered by device [None]

NARRATIVE: CASE EVENT DATE: 20170620
